FAERS Safety Report 6809285-5 (Version None)
Quarter: 2010Q2

REPORT INFORMATION
  Report Type: 
  Country: None (occurrence: None)
  Receive Date: 20100630
  Receipt Date: 20100624
  Transmission Date: 20101027
  Serious: Yes (Death)
  Sender: FDA-Public Use
  Company Number: FR-BAYER-201030202GPV

PATIENT
  Age: 63 Year
  Sex: Male
  Weight: 73 kg

DRUGS (8)
  1. ZEVALIN [Suspect]
     Indication: NON-HODGKIN'S LYMPHOMA RECURRENT
     Dosage: TOTAL DAILY DOSE: 0.4 MCI/KG
     Route: 042
  2. YTRACIS [Suspect]
     Indication: STEM CELL TRANSPLANT
     Dosage: TOTAL DAILY DOSE: 0.4 MCI/KG
     Route: 042
  3. RITUXIMAB [Suspect]
     Indication: STEM CELL TRANSPLANT
     Dosage: ON DAY-14
     Route: 042
  4. RITUXIMAB [Suspect]
     Dosage: ON DAY-21
     Route: 042
  5. FLUDARABINE [Suspect]
     Indication: STEM CELL TRANSPLANT
     Dosage: ON DAYS -6 TO -2
     Route: 042
  6. THYMOGLOBULIN [Suspect]
     Indication: STEM CELL TRANSPLANT
     Dosage: ON DAY-4
     Route: 042
  7. BUSULFAN [Suspect]
     Indication: STEM CELL TRANSPLANT
     Dosage: ON DAYS -5 AND -4
  8. CYCLOSPORINE [Suspect]
     Indication: PROPHYLAXIS AGAINST GRAFT VERSUS HOST DISEASE
     Dosage: 2 TO 3 MG/KG FROM DAY-1

REACTIONS (1)
  - MULTI-ORGAN FAILURE [None]
